FAERS Safety Report 7040083-6 (Version None)
Quarter: 2010Q4

REPORT INFORMATION
  Report Type: 
  Country: None (occurrence: None)
  Receive Date: 20101012
  Receipt Date: 20100930
  Transmission Date: 20110411
  Serious: Yes (Other)
  Sender: FDA-Public Use
  Company Number: PHHY2010JP65721

PATIENT

DRUGS (1)
  1. TEGRETOL [Suspect]
     Route: 048

REACTIONS (2)
  - COMA [None]
  - DRUG TOXICITY [None]
